FAERS Safety Report 23596157 (Version 1)
Quarter: 2024Q1

REPORT INFORMATION
  Report Type: Spontaneous
  Country: FR (occurrence: FR)
  Receive Date: 20240305
  Receipt Date: 20240305
  Transmission Date: 20240410
  Serious: Yes (Life-Threatening, Hospitalization, Other)
  Sender: FDA-Public Use
  Company Number: FR-PFIZER INC-PV202400027307

PATIENT
  Age: 17 Month
  Sex: Female

DRUGS (28)
  1. FOSPHENYTOIN SODIUM [Suspect]
     Active Substance: FOSPHENYTOIN SODIUM
     Indication: Dystonia
     Dosage: 15 MG/KG
     Dates: start: 20150413
  2. FOSPHENYTOIN SODIUM [Suspect]
     Active Substance: FOSPHENYTOIN SODIUM
     Indication: Tongue biting
  3. DIAZEPAM [Suspect]
     Active Substance: DIAZEPAM
     Indication: Dystonia
     Dosage: 0.5 MG/KG
     Dates: start: 20150413
  4. DIAZEPAM [Suspect]
     Active Substance: DIAZEPAM
     Indication: Tongue biting
  5. ACETAMINOPHEN [Suspect]
     Active Substance: ACETAMINOPHEN
     Indication: Dystonia
     Dosage: UNK
     Dates: start: 20150412
  6. ACETAMINOPHEN [Suspect]
     Active Substance: ACETAMINOPHEN
     Indication: Tongue biting
  7. MORPHINE [Suspect]
     Active Substance: MORPHINE
     Indication: Dystonia
     Dosage: UNK
     Dates: start: 20150412
  8. MORPHINE [Suspect]
     Active Substance: MORPHINE
     Indication: Tongue biting
  9. HYDROXYZINE [Suspect]
     Active Substance: HYDROXYZINE HYDROCHLORIDE
     Indication: Dystonia
     Dosage: UNK
     Dates: start: 20150414
  10. HYDROXYZINE [Suspect]
     Active Substance: HYDROXYZINE HYDROCHLORIDE
     Indication: Tongue biting
  11. CLONAZEPAM [Suspect]
     Active Substance: CLONAZEPAM
     Indication: Dystonia
     Dosage: 0.05 MG, DAILY
     Dates: start: 201504
  12. CLONAZEPAM [Suspect]
     Active Substance: CLONAZEPAM
     Indication: Tongue biting
     Dosage: 0.1 MG, DAILY
     Dates: start: 201504
  13. CLONAZEPAM [Suspect]
     Active Substance: CLONAZEPAM
     Indication: Sedation
  14. CLONAZEPAM [Suspect]
     Active Substance: CLONAZEPAM
     Indication: Analgesic therapy
  15. OXCARBAZEPINE [Suspect]
     Active Substance: OXCARBAZEPINE
     Indication: Dystonia
     Dosage: UNK
     Dates: start: 201504
  16. OXCARBAZEPINE [Suspect]
     Active Substance: OXCARBAZEPINE
     Indication: Tongue biting
  17. OXCARBAZEPINE [Suspect]
     Active Substance: OXCARBAZEPINE
     Indication: Sedation
  18. OXCARBAZEPINE [Suspect]
     Active Substance: OXCARBAZEPINE
     Indication: Analgesic therapy
  19. ARTANE [Suspect]
     Active Substance: TRIHEXYPHENIDYL HYDROCHLORIDE
     Indication: Dystonia
     Dosage: UNK
     Dates: start: 201504
  20. ARTANE [Suspect]
     Active Substance: TRIHEXYPHENIDYL HYDROCHLORIDE
     Indication: Tongue biting
  21. ACYCLOVIR [Concomitant]
     Active Substance: ACYCLOVIR
     Indication: Encephalitis
     Dosage: UNK
     Dates: start: 20150413
  22. AMOXICILLIN\CLAVULANIC ACID [Concomitant]
     Active Substance: AMOXICILLIN\CLAVULANIC ACID
     Indication: Encephalitis
     Dosage: UNK
     Dates: start: 20150413
  23. SUFENTANIL [Concomitant]
     Active Substance: SUFENTANIL
     Indication: Sedation
     Dosage: UNK
     Dates: start: 201504
  24. MIDAZOLAM [Concomitant]
     Active Substance: MIDAZOLAM
     Indication: Sedation
     Dosage: UNK
     Dates: start: 201504
  25. LEVODOPA [Concomitant]
     Active Substance: LEVODOPA
     Indication: Dystonia
     Dosage: LESS THAN OR EQUAL TO 3 MG/KG, DAILY
     Dates: start: 20150430
  26. LEVODOPA [Concomitant]
     Active Substance: LEVODOPA
     Indication: Tongue biting
  27. XENAZINE [Concomitant]
     Active Substance: TETRABENAZINE
     Indication: Dystonia
     Dosage: UNK
     Dates: start: 20150430
  28. XENAZINE [Concomitant]
     Active Substance: TETRABENAZINE
     Indication: Tongue biting
     Dosage: LESS THAN OR EQUAL TO 5.8 MG/KG PER DAY

REACTIONS (2)
  - Drug ineffective [Recovering/Resolving]
  - Off label use [Unknown]
